FAERS Safety Report 10392285 (Version 1)
Quarter: 2014Q3

REPORT INFORMATION
  Report Type: Report from Study
  Country: US (occurrence: US)
  Receive Date: 20140819
  Receipt Date: 20140819
  Transmission Date: 20150326
  Serious: Yes (Hospitalization)
  Sender: FDA-Public Use
  Company Number: US-ROCHE-1451381

PATIENT
  Sex: Male
  Weight: 27.9 kg

DRUGS (16)
  1. AVAPRO [Concomitant]
     Active Substance: IRBESARTAN
     Route: 048
  2. SINGULAIR [Concomitant]
     Active Substance: MONTELUKAST SODIUM
     Dosage: CHEWABLE TAB
     Route: 048
  3. PRILOSEC [Concomitant]
     Active Substance: OMEPRAZOLE MAGNESIUM
     Route: 048
  4. SODIUM BICARBONATE. [Concomitant]
     Active Substance: SODIUM BICARBONATE
     Dosage: 650 MG, 4 TABS
     Route: 048
  5. QVAR [Concomitant]
     Active Substance: BECLOMETHASONE DIPROPIONATE
     Dosage: 80 MCG, 2 PUFFS
     Route: 055
  6. CELLCEPT [Suspect]
     Active Substance: MYCOPHENOLATE MOFETIL\MYCOPHENOLATE MOFETIL HYDROCHLORIDE
     Indication: PRODUCT USED FOR UNKNOWN INDICATION
     Route: 048
  7. MACRODANTIN [Concomitant]
     Active Substance: NITROFURANTOIN
     Route: 048
  8. PROVENTIL HFA [Concomitant]
     Active Substance: ALBUTEROL SULFATE
     Route: 065
  9. ATROVENT [Concomitant]
     Active Substance: IPRATROPIUM BROMIDE
     Dosage: 2.5 ML
     Route: 065
  10. PROGRAF [Concomitant]
     Active Substance: TACROLIMUS\TACROLIMUS ANHYDROUS
     Dosage: 1 MG, 2 CAPS
     Route: 065
  11. COLACE [Concomitant]
     Active Substance: DOCUSATE SODIUM
     Route: 048
  12. TOBI [Concomitant]
     Active Substance: TOBRAMYCIN
     Dosage: ALTERNATE 28 DAYS ON AND 28 DAYS OFF.
     Route: 065
  13. PROVENTIL HFA [Concomitant]
     Active Substance: ALBUTEROL SULFATE
     Dosage: 2 PUFFS EVERY 4 HOURS AS NEEDED
     Route: 065
  14. PREDNISONE. [Concomitant]
     Active Substance: PREDNISONE
     Dosage: 5 MG, 1.5 TABS
     Route: 048
  15. MIRALAX [Concomitant]
     Active Substance: POLYETHYLENE GLYCOL 3350
     Indication: CONSTIPATION
     Dosage: 0.5 PACKET, AS NEEDED
     Route: 048
  16. ROCALTROL [Concomitant]
     Active Substance: CALCITRIOL
     Route: 048

REACTIONS (5)
  - Feeding disorder [Unknown]
  - Infection [Unknown]
  - Weight fluctuation [Unknown]
  - Asthma [Unknown]
  - Decreased appetite [Unknown]

NARRATIVE: CASE EVENT DATE: 2013
